FAERS Safety Report 5163394-8 (Version None)
Quarter: 2006Q4

REPORT INFORMATION
  Report Type: 
  Country: None (occurrence: None)
  Receive Date: 20061204
  Receipt Date: 20061121
  Transmission Date: 20070319
  Serious: Yes (Other)
  Sender: FDA-Public Use
  Company Number: PHEH2006US14528

PATIENT
  Sex: Female

DRUGS (2)
  1. VITAMINS [Concomitant]
  2. FEMARA [Suspect]
     Dosage: 2.5 MG, QD
     Route: 048

REACTIONS (2)
  - EYE IRRITATION [None]
  - MACULOPATHY [None]
